FAERS Safety Report 11191181 (Version 4)
Quarter: 2015Q3

REPORT INFORMATION
  Report Type: Spontaneous
  Country: US (occurrence: US)
  Receive Date: 20150615
  Receipt Date: 20150810
  Transmission Date: 20151125
  Serious: Yes (Hospitalization)
  Sender: FDA-Public Use
  Company Number: US-UNITED THERAPEUTICS-UNT-2015-007161

PATIENT
  Age: 58 Year
  Sex: Female
  Weight: 119.73 kg

DRUGS (5)
  1. REMODULIN [Suspect]
     Active Substance: TREPROSTINIL
     Dosage: 0.171 ?G/KG, CONTINUING
     Route: 058
  2. REVATIO [Concomitant]
     Active Substance: SILDENAFIL CITRATE
     Indication: PRODUCT USED FOR UNKNOWN INDICATION
  3. TRACLEER [Concomitant]
     Active Substance: BOSENTAN
     Indication: PRODUCT USED FOR UNKNOWN INDICATION
  4. REMODULIN [Suspect]
     Active Substance: TREPROSTINIL
     Indication: PULMONARY ARTERIAL HYPERTENSION
     Dosage: 0.171 ?G/KG, CONTINUING
     Route: 058
     Dates: start: 20120308
  5. REMODULIN [Suspect]
     Active Substance: TREPROSTINIL
     Dosage: UNK
     Route: 058

REACTIONS (6)
  - Ulcer haemorrhage [Unknown]
  - Asthenia [Unknown]
  - Hypotension [Unknown]
  - Large intestinal haemorrhage [Not Recovered/Not Resolved]
  - Anaemia [Unknown]
  - Intestinal mass [Unknown]

NARRATIVE: CASE EVENT DATE: 20150519
